FAERS Safety Report 18202905 (Version 1)
Quarter: 2020Q3

REPORT INFORMATION
  Report Type: Report from Study
  Country: CR (occurrence: CR)
  Receive Date: 20200827
  Receipt Date: 20200827
  Transmission Date: 20201103
  Serious: Yes (Other)
  Sender: FDA-Public Use
  Company Number: NVSC2020CR232400

PATIENT
  Age: 66 Year
  Sex: Male

DRUGS (4)
  1. VYMADA [Suspect]
     Active Substance: SACUBITRIL\VALSARTAN
     Indication: PRODUCT USED FOR UNKNOWN INDICATION
     Dosage: 100 MG, UNKNOWN
     Route: 065
  2. COROPRES [Suspect]
     Active Substance: CARVEDILOL
     Indication: HYPERTENSION
     Dosage: UNK (ONE IN THE MORNING AND ONE IN THE AFTERNOON)
     Route: 065
  3. COROPRES [Suspect]
     Active Substance: CARVEDILOL
     Dosage: UNK
     Route: 065
  4. IRBESARTAN. [Suspect]
     Active Substance: IRBESARTAN
     Indication: CARDIAC DISORDER
     Dosage: UNK
     Route: 065

REACTIONS (8)
  - Polyuria [Unknown]
  - Malaise [Unknown]
  - Hypotension [Unknown]
  - Oedema peripheral [Unknown]
  - Weight decreased [Unknown]
  - Cardiac failure [Unknown]
  - Coagulation time prolonged [Unknown]
  - Hypertension [Unknown]
